FAERS Safety Report 4893212-4 (Version None)
Quarter: 2006Q1

REPORT INFORMATION
  Report Type: 
  Country: None (occurrence: None)
  Receive Date: 20060127
  Receipt Date: 20060117
  Transmission Date: 20060701
  Serious: Yes (Other)
  Sender: FDA-Public Use
  Company Number: NL-BOEHRINGER INGELHEIM PHARMACEUTICALS, INC.-2006-NL-00013NL

PATIENT
  Sex: Male

DRUGS (4)
  1. PERSANTIN RETARD 200 [Suspect]
     Indication: PROPHYLAXIS
     Dates: start: 20051227, end: 20051229
  2. LIPITOR [Concomitant]
     Dates: start: 20010101, end: 20051230
  3. LIPITOR [Concomitant]
     Dates: start: 20051230
  4. APROVEL [Concomitant]
     Dates: start: 20051212

REACTIONS (6)
  - CHEST PAIN [None]
  - DIZZINESS [None]
  - ERUCTATION [None]
  - HEADACHE [None]
  - PAIN IN EXTREMITY [None]
  - PARAESTHESIA [None]
